FAERS Safety Report 10015897 (Version 1)
Quarter: 2014Q1

REPORT INFORMATION
  Report Type: Report from Study
  Country: IN (occurrence: IN)
  Receive Date: 20140317
  Receipt Date: 20140317
  Transmission Date: 20141002
  Serious: Yes (Death, Hospitalization)
  Sender: FDA-Public Use
  Company Number: IN-GLAXOSMITHKLINE-B0977035A

PATIENT
  Age: 45 Year
  Sex: Female

DRUGS (1)
  1. TYVERB [Suspect]
     Indication: BREAST CANCER METASTATIC
     Dosage: 250MG PER DAY
     Route: 048

REACTIONS (2)
  - Metastases to lung [Fatal]
  - Aphagia [Unknown]
